FAERS Safety Report 6503972-4 (Version None)
Quarter: 2009Q4

REPORT INFORMATION
  Report Type: 
  Country: None (occurrence: None)
  Receive Date: 20091216
  Receipt Date: 20091216
  Transmission Date: 20100525
  Serious: Yes (Other)
  Sender: FDA-Public Use
  Company Number: None

PATIENT
  Sex: Male
  Weight: 98.8842 kg

DRUGS (1)
  1. GABAPENTIN [Suspect]
     Indication: NERVE INJURY
     Dosage: 300 MG 1 AT NIGHT 5 YRS ABOUT

REACTIONS (12)
  - BALANCE DISORDER [None]
  - CONSTIPATION [None]
  - COORDINATION ABNORMAL [None]
  - DIZZINESS [None]
  - DRY MOUTH [None]
  - FATIGUE [None]
  - MENTAL DISORDER [None]
  - MOOD ALTERED [None]
  - SEXUAL DYSFUNCTION [None]
  - SOMNOLENCE [None]
  - WEIGHT INCREASED [None]
  - WHITE BLOOD CELL COUNT INCREASED [None]
